FAERS Safety Report 9243116 (Version 3)
Quarter: 2013Q3

REPORT INFORMATION
  Report Type: Report from Study
  Country: CA (occurrence: CA)
  Receive Date: 20130419
  Receipt Date: 20130706
  Transmission Date: 20140515
  Serious: Yes (Hospitalization)
  Sender: FDA-Public Use
  Company Number: CA-ELI_LILLY_AND_COMPANY-CA201304003850

PATIENT
  Age: 73 Year
  Sex: Female

DRUGS (12)
  1. TERIPARATIDE [Suspect]
     Indication: OSTEOPOROSIS
     Dosage: 20 UG, QD
     Route: 058
     Dates: start: 20130302
  2. LUCENTIS [Concomitant]
  3. OSTEO [Concomitant]
     Dosage: 50000 IU, 2 TABS ONCE PER WEEK
  4. SYNTHROID [Concomitant]
     Dosage: 0.88 MG, UNK
  5. OMEPRAZOLE [Concomitant]
     Dosage: 20 MG, BID
  6. KETOROLAC [Concomitant]
     Dosage: 10 MG, QID
  7. ATORVASTATIN [Concomitant]
     Dosage: 10 MG, UNK
  8. DILAUDID [Concomitant]
     Dosage: UNK, PRN
  9. ASA [Concomitant]
     Dosage: 81 MG, UNK
  10. GABAPENTIN [Concomitant]
     Dosage: 300 MG, TID
  11. BETAHISTINE [Concomitant]
     Dosage: 16 MG, EVERY 8 HRS/ PRN
  12. HYDROMORPHONE [Concomitant]
     Dosage: 2 MG, EVERY 2-4 HRS PRN

REACTIONS (1)
  - Pain [Unknown]
